FAERS Safety Report 7910537-6 (Version None)
Quarter: 2011Q4

REPORT INFORMATION
  Report Type: 
  Country: None (occurrence: None)
  Receive Date: 20111111
  Receipt Date: 20111101
  Transmission Date: 20120403
  Serious: Yes (Hospitalization)
  Sender: FDA-Public Use
  Company Number: PHHY2011DE85802

PATIENT
  Sex: Female
  Weight: 97 kg

DRUGS (1)
  1. TASIGNA [Suspect]
     Indication: CHRONIC MYELOID LEUKAEMIA
     Dosage: 800 MG, QD
     Route: 048
     Dates: start: 20100104

REACTIONS (8)
  - CEREBROVASCULAR ACCIDENT [None]
  - TRANSIENT ISCHAEMIC ATTACK [None]
  - DIARRHOEA [None]
  - CEREBRAL INFARCTION [None]
  - ABDOMINAL PAIN LOWER [None]
  - CHILLS [None]
  - ASTHENIA [None]
  - PYREXIA [None]
